FAERS Safety Report 11577384 (Version 1)
Quarter: 2015Q3

REPORT INFORMATION
  Report Type: Spontaneous
  Country: US (occurrence: US)
  Receive Date: 20150930
  Receipt Date: 20150930
  Transmission Date: 20151125
  Serious: No
  Sender: FDA-Public Use
  Company Number: US-GE HEALTHCARE MEDICAL DIAGNOSTICS-M123-PR-1509S-0011

PATIENT
  Age: 28 Year
  Sex: Female

DRUGS (2)
  1. ADREVIEW [Suspect]
     Active Substance: IOBENGUANE I-123
     Indication: DIAGNOSTIC PROCEDURE
  2. ADREVIEW [Suspect]
     Active Substance: IOBENGUANE I-123
     Indication: PITUITARY-DEPENDENT CUSHING^S SYNDROME
     Dosage: DOSE NOT REPORTED
     Route: 042
     Dates: start: 20150901, end: 20150901

REACTIONS (2)
  - Dysgeusia [Recovered/Resolved]
  - Dizziness [Recovered/Resolved]

NARRATIVE: CASE EVENT DATE: 20150901
